FAERS Safety Report 23734919 (Version 1)
Quarter: 2024Q2

REPORT INFORMATION
  Report Type: Spontaneous
  Country: SE (occurrence: SE)
  Receive Date: 20240412
  Receipt Date: 20240412
  Transmission Date: 20240716
  Serious: Yes (Hospitalization)
  Sender: FDA-Public Use
  Company Number: None

PATIENT
  Age: 59 Year
  Sex: Male
  Weight: 101 kg

DRUGS (16)
  1. PROLIA [Suspect]
     Active Substance: DENOSUMAB
     Indication: Osteoporosis
     Dosage: 60 MILLIGRAM (1 INJECTION EVERY 26 WEEK)
     Route: 058
     Dates: start: 20210208, end: 20240101
  2. ESOMEPRAZOLE [Concomitant]
     Active Substance: ESOMEPRAZOLE
     Indication: Product used for unknown indication
     Dosage: 1 TABLET IN THE EVENING
     Route: 048
     Dates: start: 20200825
  3. MORPHINE [Concomitant]
     Active Substance: MORPHINE
     Indication: Product used for unknown indication
     Dosage: 2 PROLONGED-RELEASE TABLET X2
     Route: 048
     Dates: start: 20220516
  4. EBASTINE [Concomitant]
     Active Substance: EBASTINE
     Indication: Product used for unknown indication
     Dosage: 1 TABLET DAILY
     Route: 048
     Dates: start: 20200825
  5. ATENOLOL [Concomitant]
     Active Substance: ATENOLOL
     Indication: Product used for unknown indication
     Dosage: 1 TABLET
     Route: 048
     Dates: start: 20171129
  6. ORUDIS [Concomitant]
     Active Substance: KETOPROFEN
     Indication: Product used for unknown indication
     Dosage: 1 CAPSULE DAILY
     Route: 048
     Dates: start: 20171129
  7. MOMETASONE ORION [Concomitant]
     Indication: Product used for unknown indication
     Dosage: 2 DOSES X2 AS NEEDED
     Route: 045
     Dates: start: 20210208
  8. ATARAX [Concomitant]
     Active Substance: HYDROXYZINE HYDROCHLORIDE
     Indication: Product used for unknown indication
     Dosage: 1 TABLET X3
     Route: 048
     Dates: start: 20210208
  9. MELATONIN [Concomitant]
     Active Substance: MELATONIN
     Indication: Product used for unknown indication
     Dosage: 2 PRLONGED-RELEASE TABLET BEFORE NIGHT
     Route: 048
     Dates: start: 20200825
  10. LOSARTAN [Concomitant]
     Active Substance: LOSARTAN
     Indication: Product used for unknown indication
     Dosage: 1 TABLET DAILY
     Route: 048
     Dates: start: 20200825
  11. Furix [Concomitant]
     Dosage: 1-2 TABLETS AS NEEDED
     Route: 048
     Dates: start: 20210208
  12. ACETAMINOPHEN [Concomitant]
     Active Substance: ACETAMINOPHEN
     Dosage: 1-4 TABLET AS NEEDED
     Route: 048
     Dates: start: 20220207
  13. CALCIUM CARBONATE\CHOLECALCIFEROL [Concomitant]
     Active Substance: CALCIUM CARBONATE\CHOLECALCIFEROL
     Dosage: 1 TABLET IN EVENING
     Route: 048
     Dates: start: 20171129
  14. OXYCODONE HYDROCHLORIDE [Concomitant]
     Active Substance: OXYCODONE HYDROCHLORIDE
     Dosage: 1 CAPSULE AS NEEDED
     Route: 048
     Dates: start: 20200825
  15. INNOVAIR [Concomitant]
     Active Substance: BECLOMETHASONE DIPROPIONATE\FORMOTEROL
     Indication: Product used for unknown indication
     Dosage: 1 INHALATION X2
     Route: 048
     Dates: start: 20220516
  16. ACETYLCYSTEIN ALTERNOVA [Concomitant]
     Dosage: 1 EFFERVESCENT TABLET AS NEEDED
     Route: 048
     Dates: start: 20220516

REACTIONS (2)
  - Jaw fracture [Not Recovered/Not Resolved]
  - Osteonecrosis of jaw [Not Recovered/Not Resolved]

NARRATIVE: CASE EVENT DATE: 20231026
